FAERS Safety Report 18701839 (Version 1)
Quarter: 2021Q1

REPORT INFORMATION
  Report Type: Spontaneous
  Country: US (occurrence: US)
  Receive Date: 20210105
  Receipt Date: 20210105
  Transmission Date: 20210419
  Serious: No
  Sender: FDA-Public Use
  Company Number: None

PATIENT
  Age: 58 Year
  Sex: Female
  Weight: 58.51 kg

DRUGS (22)
  1. DOXYCYCLINE. [Concomitant]
     Active Substance: DOXYCYCLINE
  2. FENTANYL. [Concomitant]
     Active Substance: FENTANYL
  3. FISH OIL [Concomitant]
     Active Substance: FISH OIL
  4. PERCOCET [Concomitant]
     Active Substance: ACETAMINOPHEN\OXYCODONE HYDROCHLORIDE
  5. XGEVA [Suspect]
     Active Substance: DENOSUMAB
     Indication: LUNG NEOPLASM MALIGNANT
     Dosage: ?          OTHER FREQUENCY:ONCE EVERY 4 WEEKS;?
     Route: 058
     Dates: start: 20190326
  6. ALPRAZOLAM. [Concomitant]
     Active Substance: ALPRAZOLAM
  7. TOPAMAX [Concomitant]
     Active Substance: TOPIRAMATE
  8. LEVOTHYROXINE. [Concomitant]
     Active Substance: LEVOTHYROXINE
  9. NYSTATIN. [Concomitant]
     Active Substance: NYSTATIN
  10. PREDNISONE. [Concomitant]
     Active Substance: PREDNISONE
  11. SERTRALINE [Concomitant]
     Active Substance: SERTRALINE HYDROCHLORIDE
  12. CORTEF [Concomitant]
     Active Substance: HYDROCORTISONE
  13. LOMOTIL [Concomitant]
     Active Substance: ATROPINE SULFATE\DIPHENOXYLATE HYDROCHLORIDE
  14. METHADONE [Concomitant]
     Active Substance: METHADONE HYDROCHLORIDE
  15. ONDANSETRON [Concomitant]
     Active Substance: ONDANSETRON
  16. OXYCODONE [Concomitant]
     Active Substance: OXYCODONE
  17. POTASSIUM CHLORIDE. [Concomitant]
     Active Substance: POTASSIUM CHLORIDE
  18. FUROSEMIDE. [Concomitant]
     Active Substance: FUROSEMIDE
  19. PROMETHAZINE [Concomitant]
     Active Substance: PROMETHAZINE HYDROCHLORIDE
  20. COUMADIN [Concomitant]
     Active Substance: WARFARIN SODIUM
  21. DULOXETINE. [Concomitant]
     Active Substance: DULOXETINE
  22. MS CONTIN [Concomitant]
     Active Substance: MORPHINE SULFATE

REACTIONS (1)
  - Burning sensation [None]

NARRATIVE: CASE EVENT DATE: 20210105
